FAERS Safety Report 7151993-3 (Version None)
Quarter: 2010Q4

REPORT INFORMATION
  Report Type: 
  Country: None (occurrence: None)
  Receive Date: 20101211
  Receipt Date: 20101203
  Transmission Date: 20110411
  Serious: Yes (Other)
  Sender: FDA-Public Use
  Company Number: US-PFIZER INC-2010107469

PATIENT
  Sex: Male
  Weight: 126.98 kg

DRUGS (22)
  1. NEURONTIN [Suspect]
     Indication: PAIN IN EXTREMITY
     Dosage: 100 MG, 1X/DAY
     Route: 048
     Dates: start: 20070101
  2. NEURONTIN [Suspect]
     Indication: LIMB DISCOMFORT
  3. REMODULIN [Concomitant]
     Indication: PULMONARY HYPERTENSION
     Dosage: UNK,CONTINUOUS INFUSION
     Route: 042
  4. TRACLEER [Concomitant]
     Indication: PULMONARY HYPERTENSION
     Dosage: 125 MG, 2X/DAY
     Route: 048
  5. NORVASC [Concomitant]
     Indication: PULMONARY HYPERTENSION
     Dosage: 10 MG, 1X/DAY
     Route: 048
  6. SYMBICORT [Concomitant]
     Indication: ASTHMA
     Dosage: TWO PUFFS 2X/DAY
  7. ZESTRIL [Concomitant]
     Dosage: 10 MG, 1X/DAY
     Route: 048
  8. PROVIGIL [Concomitant]
     Indication: NARCOLEPSY
     Dosage: 200 MG, 1X/DAY
     Route: 048
  9. SPIRIVA [Concomitant]
     Indication: ASTHMA
     Dosage: UNK
  10. LEXAPRO [Concomitant]
     Indication: DEPRESSION
     Dosage: 10 MG, 1X/DAY
     Route: 048
  11. WARFARIN [Concomitant]
     Indication: ANTICOAGULANT THERAPY
     Dosage: 12.5 MG, 1X/DAY
  12. REVATIO [Concomitant]
     Indication: PULMONARY HYPERTENSION
     Dosage: 20 MG, 3X/DAY
     Route: 048
  13. SPIRONOLACTONE [Concomitant]
     Indication: OEDEMA
     Dosage: 50 MG, 1X/DAY
  14. ALBUTEROL [Concomitant]
     Dosage: UNK, AS NEEDED
  15. DARVOCET [Concomitant]
     Dosage: UNK, AS NEEDED
  16. BENADRYL [Concomitant]
     Dosage: UNK, 2X/DAILY
  17. NASONEX [Concomitant]
  18. LASIX [Concomitant]
     Dosage: UNK, AS NEEDED
  19. VICODIN [Concomitant]
     Dosage: 5 MG, UNK
  20. OXYCONTIN [Concomitant]
  21. XANAX [Concomitant]
  22. LYRICA [Concomitant]

REACTIONS (4)
  - DYSPHAGIA [None]
  - GASTROOESOPHAGEAL REFLUX DISEASE [None]
  - HYPERSENSITIVITY [None]
  - OROPHARYNGEAL SPASM [None]
